FAERS Safety Report 10336664 (Version 2)
Quarter: 2014Q3

REPORT INFORMATION
  Report Type: Spontaneous
  Country: US (occurrence: US)
  Receive Date: 20140723
  Receipt Date: 20140723
  Transmission Date: 20150326
  Serious: Yes (Other)
  Sender: FDA-Public Use
  Company Number: US-SHIONOGI, INC.-2014000616

PATIENT
  Age: 53 Year
  Sex: Female

DRUGS (7)
  1. OSPHENA [Suspect]
     Active Substance: OSPEMIFENE
     Indication: DYSPAREUNIA
     Dosage: 60 MG, QD
     Route: 065
     Dates: start: 20140618, end: 20140710
  2. PROGESTERONE. [Concomitant]
     Active Substance: PROGESTERONE
     Dosage: ONCE DAILY (3 WEEKS/MONTH)
     Route: 061
  3. VAGIFEM [Concomitant]
     Active Substance: ESTRADIOL
     Indication: PRODUCT USED FOR UNKNOWN INDICATION
     Dosage: TWICE PER WEEK
     Dates: end: 20140623
  4. ALLERGY                            /00082102/ [Concomitant]
     Indication: PRODUCT USED FOR UNKNOWN INDICATION
     Dosage: UNK
     Route: 065
  5. LIOTHYRONINE [Concomitant]
     Active Substance: LIOTHYRONINE
     Indication: HYPOTHYROIDISM
  6. ELMIRON [Suspect]
     Active Substance: PENTOSAN POLYSULFATE SODIUM
     Indication: PRODUCT USED FOR UNKNOWN INDICATION
     Dosage: UNK
     Dates: start: 201407
  7. SYNTHROID [Concomitant]
     Active Substance: LEVOTHYROXINE SODIUM
     Indication: PRODUCT USED FOR UNKNOWN INDICATION
     Dosage: UNK
     Route: 065

REACTIONS (9)
  - Limb discomfort [Recovered/Resolved]
  - Hot flush [Recovered/Resolved]
  - Visual acuity reduced [Recovered/Resolved]
  - Halo vision [Recovered/Resolved]
  - Bone pain [Recovered/Resolved]
  - Nausea [Not Recovered/Not Resolved]
  - Headache [Recovered/Resolved]
  - Labelled drug-drug interaction medication error [Unknown]
  - Condition aggravated [None]

NARRATIVE: CASE EVENT DATE: 2014
